FAERS Safety Report 18507458 (Version 5)
Quarter: 2021Q2

REPORT INFORMATION
  Report Type: Report from Study
  Country: ES (occurrence: ES)
  Receive Date: 20201116
  Receipt Date: 20210415
  Transmission Date: 20210717
  Serious: Yes (Death, Hospitalization)
  Sender: FDA-Public Use
  Company Number: ES-EISAI MEDICAL RESEARCH-EC-2020-073186

PATIENT
  Age: 61 Year
  Sex: Male
  Weight: 89.5 kg

DRUGS (9)
  1. PEMBROLIZUMAB. [Suspect]
     Active Substance: PEMBROLIZUMAB
     Route: 041
     Dates: start: 20200423, end: 20200423
  2. PEMBROLIZUMAB. [Suspect]
     Active Substance: PEMBROLIZUMAB
     Indication: HEPATOCELLULAR CARCINOMA
     Route: 041
     Dates: start: 20200402, end: 20200402
  3. ALDACTONE [Concomitant]
     Active Substance: SPIRONOLACTONE
     Dates: start: 20200331, end: 20200416
  4. LENVATINIB [Suspect]
     Active Substance: LENVATINIB
     Route: 048
     Dates: start: 20200423, end: 20200429
  5. BENERVA [Concomitant]
     Active Substance: THIAMINE HYDROCHLORIDE
     Dates: start: 202002, end: 20200420
  6. BENADON [Concomitant]
     Active Substance: PYRIDOXINE HYDROCHLORIDE
     Dates: start: 202002, end: 20200420
  7. LENVATINIB [Suspect]
     Active Substance: LENVATINIB
     Indication: HEPATOCELLULAR CARCINOMA
     Route: 048
     Dates: start: 20200402, end: 20200408
  8. FUROSEMIDE. [Suspect]
     Active Substance: FUROSEMIDE
     Indication: HYPONATRAEMIA
     Route: 048
     Dates: start: 20200331, end: 20200416
  9. ALDACTONE [Concomitant]
     Active Substance: SPIRONOLACTONE
     Dates: start: 20200227, end: 20200330

REACTIONS (4)
  - Ascites [Recovered/Resolved]
  - Blood bilirubin increased [Recovered/Resolved]
  - Hepatic encephalopathy [Recovered/Resolved]
  - Hyperkalaemia [Recovered/Resolved]

NARRATIVE: CASE EVENT DATE: 20200406
